FAERS Safety Report 4983446-2 (Version None)
Quarter: 2006Q2

REPORT INFORMATION
  Report Type: 
  Country: None (occurrence: None)
  Receive Date: 20060419
  Receipt Date: 20060406
  Transmission Date: 20061013
  Serious: Yes (Other)
  Sender: FDA-Public Use
  Company Number: 2006048476

PATIENT
  Age: 70 Year
  Sex: Male

DRUGS (2)
  1. VIAGRA [Suspect]
     Indication: PSYCHOSOMATIC DISEASE
     Dosage: (100 MG, PRN), ORAL
     Route: 048
     Dates: start: 20040901, end: 20050201
  2. CIALIS [Suspect]
     Indication: PSYCHOSOMATIC DISEASE
     Dosage: (20 MG, PRN), ORAL
     Route: 048
     Dates: start: 20040901, end: 20050201

REACTIONS (2)
  - DETACHMENT OF RETINAL PIGMENT EPITHELIUM [None]
  - VISUAL ACUITY REDUCED [None]
